APPROVED DRUG PRODUCT: PIRFENIDONE
Active Ingredient: PIRFENIDONE
Strength: 267MG
Dosage Form/Route: TABLET;ORAL
Application: A212674 | Product #001 | TE Code: AB
Applicant: HETERO LABS LTD UNIT V
Approved: Sep 21, 2022 | RLD: No | RS: No | Type: RX